FAERS Safety Report 17868044 (Version 1)
Quarter: 2020Q2

REPORT INFORMATION
  Report Type: Spontaneous
  Country: US (occurrence: US)
  Receive Date: 20200605
  Receipt Date: 20200605
  Transmission Date: 20200714
  Serious: No
  Sender: FDA-Public Use
  Company Number: US-009507513-2005USA007906

PATIENT
  Age: 32 Year
  Sex: Female

DRUGS (4)
  1. GANIRELIX ACETATE INJECTION [Suspect]
     Active Substance: GANIRELIX ACETATE
     Indication: IN VITRO FERTILISATION
     Dosage: 250 MICROGRAM, ON DAY 6 OF STIMULATION
  2. PROGESTERONE. [Concomitant]
     Active Substance: PROGESTERONE
     Dosage: 50 MILLIGRAM, 1 DAY
     Route: 030
  3. GONADOTROPIN, CHORIONIC [Concomitant]
     Active Substance: CHORIOGONADOTROPIN ALFA
     Indication: IN VITRO FERTILISATION
     Dosage: 10000 INTERNATIONAL UNIT
  4. GONAL-F [Concomitant]
     Active Substance: FOLLITROPIN
     Indication: IN VITRO FERTILISATION
     Dosage: 300 INTERNATIONAL UNIT, 1 DAY

REACTIONS (1)
  - Maternal exposure before pregnancy [Recovered/Resolved]
